FAERS Safety Report 17975832 (Version 3)
Quarter: 2020Q3

REPORT INFORMATION
  Report Type: Spontaneous
  Country: IT (occurrence: IT)
  Receive Date: 20200702
  Receipt Date: 20200804
  Transmission Date: 20201103
  Serious: Yes (Death)
  Sender: FDA-Public Use
  Company Number: NVSC2020IT184551

PATIENT
  Age: 79 Year
  Sex: Male

DRUGS (2)
  1. CEFTRIAXONE. [Suspect]
     Active Substance: CEFTRIAXONE
     Indication: SUBCUTANEOUS ABSCESS
     Dosage: 1 G, ONCE/SINGLE
     Route: 030
     Dates: start: 20130218
  2. AMOXICILLIN/CLAVULANIC ACID [Concomitant]
     Active Substance: AMOXICILLIN\CLAVULANIC ACID
     Indication: PRODUCT USED FOR UNKNOWN INDICATION
     Dosage: UNK, CPR
     Route: 065
     Dates: start: 20130218

REACTIONS (8)
  - Dyspnoea [Fatal]
  - Brain oedema [Fatal]
  - Anaphylactic shock [Fatal]
  - Cyanosis [Fatal]
  - Myocardial oedema [Fatal]
  - Emphysema [Fatal]
  - Pulmonary oedema [Fatal]
  - Cardiac arrest [Fatal]

NARRATIVE: CASE EVENT DATE: 20130218
